FAERS Safety Report 8037766-8 (Version None)
Quarter: 2012Q1

REPORT INFORMATION
  Report Type: 
  Country: None (occurrence: None)
  Receive Date: 20120111
  Receipt Date: 20120103
  Transmission Date: 20120608
  Serious: Yes (Hospitalization)
  Sender: FDA-Public Use
  Company Number: PH-BAXTER-2012BH000442

PATIENT
  Age: 79 Year
  Sex: Male

DRUGS (4)
  1. CALCIUM CARBONATE [Concomitant]
     Indication: PRODUCT USED FOR UNKNOWN INDICATION
     Route: 065
  2. LACTULOSE [Concomitant]
     Indication: PRODUCT USED FOR UNKNOWN INDICATION
     Route: 065
  3. DIANEAL [Suspect]
     Indication: PERITONEAL DIALYSIS
     Route: 033
     Dates: start: 20111220
  4. GLICLAZIDE [Concomitant]
     Indication: DIABETES MELLITUS
     Route: 065

REACTIONS (2)
  - ASTHENIA [None]
  - PERITONITIS BACTERIAL [None]
